FAERS Safety Report 6546709-5 (Version None)
Quarter: 2010Q1

REPORT INFORMATION
  Report Type: 
  Country: None (occurrence: None)
  Receive Date: 20100122
  Receipt Date: 20100114
  Transmission Date: 20100710
  Serious: Yes (Hospitalization)
  Sender: FDA-Public Use
  Company Number: TW-ROCHE-679597

PATIENT
  Sex: Female
  Weight: 75.8 kg

DRUGS (17)
  1. BEVACIZUMAB [Suspect]
     Indication: BREAST CANCER
     Dosage: DOSAGE FORM: 1050 MG, ROUTE: IVA, LAST DOSE PRIOR TO SAE: 23 DEC 2009, TEMPORARILY INTERRUPTED
     Route: 042
     Dates: start: 20090907, end: 20100113
  2. DOCETAXEL [Suspect]
     Indication: BREAST CANCER
     Dosage: DOSE FORM: 125 MG, ROUTE: IVA, LAST DOSE PRIOR TO SAE: 23 DEC 2009, TEMPORARILY INTERRUPTED
     Route: 042
     Dates: start: 20091202, end: 20100113
  3. CARVEDILOL [Concomitant]
     Dates: start: 20090918
  4. AMLODIPINE BESYLATE [Concomitant]
     Dates: start: 20090918
  5. CELEBREX [Concomitant]
     Dates: start: 20090918
  6. HYDROXYCHLOROQUINE SULFATE [Concomitant]
     Dates: start: 20050101
  7. PREDNISOLONE [Concomitant]
     Dates: start: 20050101
  8. SULFASALAZINE [Concomitant]
     Dates: start: 20050101
  9. UREA CREAM [Concomitant]
     Route: 061
     Dates: start: 20091223
  10. VITAMIN B6 [Concomitant]
     Dates: start: 20091223
  11. NEUPOGEN [Concomitant]
     Dosage: TDD: }50 MCG
     Dates: start: 20091223, end: 20091227
  12. LOPERAMIDE [Concomitant]
     Dates: start: 20091223, end: 20091230
  13. DEXAMETHASONE [Concomitant]
     Route: 048
     Dates: start: 20091223, end: 20091225
  14. VOREN [Concomitant]
     Dates: start: 20091223, end: 20091230
  15. FLAGYL [Concomitant]
     Route: 048
     Dates: start: 20100113
  16. SODIUM BICARBONATE [Concomitant]
     Dosage: TDD: 3 AMP
     Dates: start: 20100114
  17. POTASSIUM CHLORIDE [Concomitant]
     Dosage: UNIT: ML
     Dates: start: 20100114

REACTIONS (2)
  - RENAL FAILURE ACUTE [None]
  - SEPSIS [None]
